FAERS Safety Report 5488239-8 (Version None)
Quarter: 2007Q4

REPORT INFORMATION
  Report Type: 
  Country: None (occurrence: None)
  Receive Date: 20071005
  Receipt Date: 20070711
  Transmission Date: 20080405
  Serious: No
  Sender: FDA-Public Use
  Company Number: PHEH2007US09922

PATIENT
  Age: 53 Year
  Sex: Male
  Weight: 81.6 kg

DRUGS (1)
  1. TEKTURNA [Suspect]
     Dosage: 150 MG, QD, ORAL
     Route: 048
     Dates: start: 20070710

REACTIONS (3)
  - FEELING HOT [None]
  - HEADACHE [None]
  - NERVOUSNESS [None]
